FAERS Safety Report 16113123 (Version 4)
Quarter: 2019Q2

REPORT INFORMATION
  Report Type: Spontaneous
  Country: US (occurrence: US)
  Receive Date: 20190325
  Receipt Date: 20190508
  Transmission Date: 20190711
  Serious: Yes (Other)
  Sender: FDA-Public Use
  Company Number: US-PFIZER INC-2019124337

PATIENT
  Age: 61 Year
  Sex: Female
  Weight: 63.5 kg

DRUGS (2)
  1. LYRICA [Suspect]
     Active Substance: PREGABALIN
     Indication: MULTIPLE SCLEROSIS
     Dosage: 75 MG, TWICE PER DAY (1 CAPSULE BY MOUTH IN THE MORNING AND 1 CAPSULE IN THE EVENING )
     Route: 048
  2. LYRICA [Suspect]
     Active Substance: PREGABALIN
     Indication: FIBROMYALGIA

REACTIONS (10)
  - Intentional product misuse [Unknown]
  - Feeling abnormal [Unknown]
  - Malaise [Unknown]
  - Influenza [Unknown]
  - Respiratory disorder [Unknown]
  - Urinary tract infection [Unknown]
  - Autoimmune disorder [Not Recovered/Not Resolved]
  - Myocardial infarction [Unknown]
  - Drug ineffective [Unknown]
  - Condition aggravated [Not Recovered/Not Resolved]
